FAERS Safety Report 15109921 (Version 2)
Quarter: 2018Q3

REPORT INFORMATION
  Report Type: Report from Study
  Country: US (occurrence: US)
  Receive Date: 20180705
  Receipt Date: 20180802
  Transmission Date: 20181010
  Serious: Yes (Hospitalization, Other)
  Sender: FDA-Public Use
  Company Number: US-PFIZER INC-2018075239

PATIENT
  Age: 66 Year
  Sex: Female

DRUGS (5)
  1. IBRANCE [Suspect]
     Active Substance: PALBOCICLIB
     Indication: BREAST CANCER
     Dosage: 125 MG, DAILY
     Route: 048
     Dates: start: 20180208, end: 2018
  2. IBRANCE [Suspect]
     Active Substance: PALBOCICLIB
     Dosage: 125 MG, CYCLIC (21 DAYS ON AND 7 DAYS OFF)
     Route: 048
     Dates: start: 20180626
  3. EXEMESTANE. [Concomitant]
     Active Substance: EXEMESTANE
     Dosage: UNK, DAILY
     Route: 048
     Dates: start: 20180208
  4. FASLODEX [Concomitant]
     Active Substance: FULVESTRANT
     Route: 030
  5. FASLODEX [Concomitant]
     Active Substance: FULVESTRANT
     Dosage: UNK, DAILY
     Route: 048
     Dates: start: 20180208

REACTIONS (16)
  - Hypertension [Unknown]
  - Neutropenia [Unknown]
  - Fatigue [Unknown]
  - Nausea [Unknown]
  - Respiratory tract infection [Unknown]
  - Pyrexia [Unknown]
  - Leukopenia [Unknown]
  - Mucosal inflammation [Not Recovered/Not Resolved]
  - Alopecia [Unknown]
  - Localised infection [Unknown]
  - Myocardial infarction [Unknown]
  - Cough [Recovering/Resolving]
  - Bone marrow failure [Unknown]
  - Diarrhoea [Unknown]
  - Dysgeusia [Unknown]
  - Neoplasm progression [Unknown]

NARRATIVE: CASE EVENT DATE: 2018
